FAERS Safety Report 8333758-X (Version None)
Quarter: 2012Q1

REPORT INFORMATION
  Report Type: 
  Country: None (occurrence: None)
  Receive Date: 20120328
  Receipt Date: 20100707
  Transmission Date: 20120608
  Serious: Yes (Other)
  Sender: FDA-Public Use
  Company Number: PHHY2010US44617

PATIENT
  Sex: Female

DRUGS (1)
  1. VALTURNA [Suspect]

REACTIONS (3)
  - BALANCE DISORDER [None]
  - DIARRHOEA [None]
  - DIZZINESS [None]
